FAERS Safety Report 7303972-0 (Version None)
Quarter: 2011Q1

REPORT INFORMATION
  Report Type: 
  Country: None (occurrence: None)
  Receive Date: 20110221
  Receipt Date: 20110210
  Transmission Date: 20110831
  Serious: Yes (Death)
  Sender: FDA-Public Use
  Company Number: US-BAXTER-2011BH002241

PATIENT
  Age: 54 Year
  Sex: Male

DRUGS (3)
  1. DIANEAL [Suspect]
     Route: 033
     Dates: end: 20110118
  2. DIANEAL [Suspect]
     Indication: PERITONEAL DIALYSIS
     Route: 033
     Dates: end: 20110118
  3. DIANEAL [Suspect]
     Route: 033
     Dates: end: 20110118

REACTIONS (1)
  - CARDIAC ARREST [None]
